FAERS Safety Report 24589257 (Version 2)
Quarter: 2024Q4

REPORT INFORMATION
  Report Type: Spontaneous
  Country: US (occurrence: US)
  Receive Date: 20241107
  Receipt Date: 20241227
  Transmission Date: 20250114
  Serious: Yes (Death)
  Sender: PFIZER
  Company Number: US-PFIZER INC-202400295808

PATIENT
  Age: 61 Year
  Sex: Female

DRUGS (1)
  1. ADCETRIS [Suspect]
     Active Substance: BRENTUXIMAB VEDOTIN
     Dosage: EVERY 14 DAYS

REACTIONS (1)
  - Death [Fatal]
